FAERS Safety Report 4760972-2 (Version None)
Quarter: 2005Q3

REPORT INFORMATION
  Report Type: 
  Country: None (occurrence: None)
  Receive Date: 20050901
  Receipt Date: 20050811
  Transmission Date: 20060218
  Serious: Yes (Other)
  Sender: FDA-Public Use
  Company Number: 1708

PATIENT
  Age: 26 Year
  Sex: Female

DRUGS (1)
  1. AMNESTEEM [Suspect]
     Indication: ACNE
     Dosage: 40MG, BID, PO
     Route: 048
     Dates: start: 20050701, end: 20050810

REACTIONS (1)
  - PREGNANCY TEST URINE POSITIVE [None]
